FAERS Safety Report 8961904 (Version 2)
Quarter: 2012Q4

REPORT INFORMATION
  Report Type: 
  Country: US (occurrence: US)
  Receive Date: 20121212
  Receipt Date: 20121227
  Transmission Date: 20130627
  Serious: No
  Sender: FDA-Public Use
  Company Number: US-009507513-1212USA000832

PATIENT
  Sex: Male
  Weight: 77.98 kg

DRUGS (1)
  1. DULERA [Suspect]
     Dosage: 100 mg/5 mg/unspecified
     Route: 055
     Dates: start: 201105

REACTIONS (1)
  - Oral candidiasis [Recovered/Resolved]
